FAERS Safety Report 10924740 (Version 1)
Quarter: 2015Q1

REPORT INFORMATION
  Report Type: Spontaneous
  Country: US (occurrence: None)
  Receive Date: 20150316
  Receipt Date: 20150316
  Transmission Date: 20150721
  Serious: Yes (Other)
  Sender: FDA-Public Use
  Company Number: None

PATIENT
  Age: 4 Month
  Sex: Female

DRUGS (2)
  1. DAILY VITAMIN [Concomitant]
     Active Substance: VITAMINS
  2. ZOFRAN [Suspect]
     Active Substance: ONDANSETRON HYDROCHLORIDE
     Indication: NAUSEA
     Dates: start: 20120501, end: 20120601

REACTIONS (6)
  - Eating disorder [None]
  - Gait disturbance [None]
  - Speech disorder developmental [None]
  - Childhood disintegrative disorder [None]
  - Muscular weakness [None]
  - Hypotonia [None]

NARRATIVE: CASE EVENT DATE: 20120419
